FAERS Safety Report 14278320 (Version 1)
Quarter: 2017Q4

REPORT INFORMATION
  Report Type: Spontaneous
  Country: GB (occurrence: GB)
  Receive Date: 20171211
  Receipt Date: 20171211
  Transmission Date: 20180321
  Serious: Yes (Disabling)
  Sender: FDA-Public Use
  Company Number: GB-OTSUKA-DJ20072503

PATIENT

DRUGS (2)
  1. CLOZARIL [Concomitant]
     Active Substance: CLOZAPINE
     Route: 065
  2. ABILIFY [Suspect]
     Active Substance: ARIPIPRAZOLE
     Indication: SCHIZOPHRENIA
     Route: 048
     Dates: start: 200606, end: 200607

REACTIONS (1)
  - Laryngospasm [Recovered/Resolved]
